FAERS Safety Report 16536344 (Version 1)
Quarter: 2019Q3

REPORT INFORMATION
  Report Type: Spontaneous
  Country: US (occurrence: US)
  Receive Date: 20190705
  Receipt Date: 20190705
  Transmission Date: 20191004
  Serious: No
  Sender: FDA-Public Use
  Company Number: US-BEH-2019104032

PATIENT

DRUGS (1)
  1. ALCOHOL PAD [Suspect]
     Active Substance: ISOPROPYL ALCOHOL
     Route: 065

REACTIONS (4)
  - Device issue [Unknown]
  - Liquid product physical issue [Unknown]
  - Device leakage [Unknown]
  - No adverse event [Unknown]
